FAERS Safety Report 7795928-9 (Version None)
Quarter: 2011Q4

REPORT INFORMATION
  Report Type: 
  Country: None (occurrence: None)
  Receive Date: 20111004
  Receipt Date: 20110926
  Transmission Date: 20120403
  Serious: Yes (Other)
  Sender: FDA-Public Use
  Company Number: GB-B.I. PHARMACEUTICALS,INC./RIDGEFIELD-2011-UK-01019UK

PATIENT
  Age: 9 Year
  Sex: Male
  Weight: 46.2 kg

DRUGS (1)
  1. CATAPRES [Suspect]
     Indication: TIC
     Dosage: 50 MCG
     Route: 048
     Dates: start: 20110727, end: 20110803

REACTIONS (7)
  - CHEST PAIN [None]
  - FEELING OF BODY TEMPERATURE CHANGE [None]
  - NAUSEA [None]
  - DIZZINESS [None]
  - HYPERHIDROSIS [None]
  - HEADACHE [None]
  - ABDOMINAL PAIN UPPER [None]
